FAERS Safety Report 6751212-3 (Version None)
Quarter: 2010Q2

REPORT INFORMATION
  Report Type: 
  Country: None (occurrence: None)
  Receive Date: 20100602
  Receipt Date: 20100524
  Transmission Date: 20101027
  Serious: Yes (Hospitalization, Disabling, Other)
  Sender: FDA-Public Use
  Company Number: IE-ABBOTT-10P-229-0625877-00

PATIENT
  Sex: Female
  Weight: 70.7 kg

DRUGS (3)
  1. HUMIRA [Suspect]
     Indication: CROHN'S DISEASE
     Dosage: POSSIBLY 80 MG EOW
     Route: 058
     Dates: start: 20071003, end: 20100210
  2. INFLIXIMAB [Concomitant]
     Indication: DRUG USE FOR UNKNOWN INDICATION
     Dates: start: 20020101, end: 20070101
  3. IMODIUM [Concomitant]
     Indication: DIARRHOEA
     Route: 048

REACTIONS (3)
  - BALANCE DISORDER [None]
  - DIPLOPIA [None]
  - MULTIPLE SCLEROSIS [None]
